FAERS Safety Report 9778230 (Version 1)
Quarter: 2013Q4

REPORT INFORMATION
  Report Type: Spontaneous
  Country: FR (occurrence: FR)
  Receive Date: 20131223
  Receipt Date: 20131223
  Transmission Date: 20140711
  Serious: Yes (Hospitalization)
  Sender: FDA-Public Use
  Company Number: FR-009507513-1312FRA007535

PATIENT
  Age: 63 Year
  Sex: Male
  Weight: 100 kg

DRUGS (9)
  1. JANUVIA [Suspect]
     Indication: INSULIN-REQUIRING TYPE 2 DIABETES MELLITUS
     Dosage: UNK
     Route: 048
     Dates: end: 201312
  2. INSULIN [Concomitant]
  3. GLUCOPHAGE [Concomitant]
  4. AMIODARONE [Concomitant]
  5. COTAREG [Concomitant]
  6. ATENOLOL [Concomitant]
  7. LASILIX [Concomitant]
  8. PLAVIX [Concomitant]
  9. DIFFU-K [Concomitant]

REACTIONS (2)
  - Cardiac failure [Recovered/Resolved]
  - Hypoglycaemia [Unknown]
